FAERS Safety Report 7328611-4 (Version None)
Quarter: 2011Q1

REPORT INFORMATION
  Report Type: 
  Country: None (occurrence: None)
  Receive Date: 20110225
  Receipt Date: 20110225
  Transmission Date: 20110831
  Serious: Yes (Life-Threatening)
  Sender: FDA-Public Use
  Company Number: None

PATIENT
  Age: 46 Year
  Sex: Male
  Weight: 48 kg

DRUGS (1)
  1. FOSAPREPITANT 150 MG MERCK [Suspect]
     Indication: CHEMOTHERAPY
     Dosage: 150 MG ONE TIME IV
     Route: 042
     Dates: start: 20110223, end: 20110223

REACTIONS (4)
  - HYPOXIA [None]
  - FLUSHING [None]
  - INFUSION RELATED REACTION [None]
  - DYSPNOEA [None]
